FAERS Safety Report 8396209 (Version 5)
Quarter: 2013Q1

REPORT INFORMATION
  Report Type: Report from Study
  Country: US (occurrence: US)
  Receive Date: 20120208
  Receipt Date: 20130115
  Transmission Date: 20140127
  Serious: Yes (Hospitalization, Other)
  Sender: FDA-Public Use
  Company Number: US-ABBOTT-11P-163-0886699-00

PATIENT
  Age: 69 Year
  Sex: Male
  Weight: 62.65 kg

DRUGS (7)
  1. HUMIRA 40 MG/0.8 ML PEN [Suspect]
     Indication: CROHN^S DISEASE
     Dosage: 160 MG LOADING DOSE
     Dates: start: 20111220, end: 20111220
  2. HUMIRA 40 MG/0.8 ML PEN [Suspect]
     Dosage: 80 MG LOADING DOSE
     Dates: start: 20120102, end: 20120102
  3. HUMIRA 40 MG/0.8 ML PEN [Suspect]
     Dates: end: 20120117
  4. DIGESTIVE ENZYMES [Concomitant]
     Indication: PRODUCT USED FOR UNKNOWN INDICATION
     Dosage: DAILY
  5. CIPRO [Concomitant]
     Indication: PRODUCT USED FOR UNKNOWN INDICATION
  6. PREDNISONE [Concomitant]
     Indication: PRODUCT USED FOR UNKNOWN INDICATION
  7. PREDNISONE [Concomitant]
     Dosage: 5 MG

REACTIONS (24)
  - Abdominal pain [Recovering/Resolving]
  - Nausea [Recovering/Resolving]
  - Enterovesical fistula [Recovered/Resolved]
  - Crohn^s disease [Recovered/Resolved]
  - Abdominal distension [Recovering/Resolving]
  - Asthenia [Recovering/Resolving]
  - Endoscopy abnormal [Recovering/Resolving]
  - Injection site pain [Not Recovered/Not Resolved]
  - Injection site haemorrhage [Not Recovered/Not Resolved]
  - Injection site bruising [Not Recovered/Not Resolved]
  - Gastrointestinal sounds abnormal [Recovering/Resolving]
  - Abdominal pain lower [Recovering/Resolving]
  - Gastritis [Recovering/Resolving]
  - Duodenitis [Recovering/Resolving]
  - Dyspnoea [Unknown]
  - Fatigue [Recovering/Resolving]
  - Constipation [Recovering/Resolving]
  - Diarrhoea [Recovering/Resolving]
  - Cystitis [Recovering/Resolving]
  - Oedema peripheral [Unknown]
  - Hypertension [Unknown]
  - Flatulence [Unknown]
  - Muscle spasms [Unknown]
  - Crohn^s disease [Unknown]
